APPROVED DRUG PRODUCT: TRACLEER
Active Ingredient: BOSENTAN
Strength: 62.5MG
Dosage Form/Route: TABLET;ORAL
Application: N021290 | Product #001 | TE Code: AB
Applicant: ACTELION PHARMACEUTICALS US INC
Approved: Nov 20, 2001 | RLD: Yes | RS: No | Type: RX